FAERS Safety Report 6046740-2 (Version None)
Quarter: 2009Q1

REPORT INFORMATION
  Report Type: 
  Country: None (occurrence: None)
  Receive Date: 20090122
  Receipt Date: 20090118
  Transmission Date: 20090719
  Serious: Yes (Death)
  Sender: FDA-Public Use
  Company Number: US-PFIZER INC-2008150319

PATIENT
  Age: 63 Year
  Sex: Female

DRUGS (7)
  1. NORVASC [Suspect]
     Indication: HYPERTENSION
     Dosage: 10 MG, UNK
     Route: 048
  2. BENICAR [Concomitant]
  3. AMBIEN [Concomitant]
  4. ALPRAZOLAM [Concomitant]
  5. CITALOPRAM [Concomitant]
  6. OMEPRAZOLE [Concomitant]
  7. TRAMADOL [Concomitant]

REACTIONS (1)
  - COMPLETED SUICIDE [None]
